FAERS Safety Report 20454780 (Version 2)
Quarter: 2022Q1

REPORT INFORMATION
  Report Type: Spontaneous
  Country: JP (occurrence: JP)
  Receive Date: 20220210
  Receipt Date: 20220318
  Transmission Date: 20220424
  Serious: Yes (Death, Hospitalization)
  Sender: FDA-Public Use
  Company Number: JP-BAYER-2022A020339

PATIENT
  Age: 79 Year
  Sex: Female

DRUGS (11)
  1. XARELTO [Suspect]
     Active Substance: RIVAROXABAN
     Indication: Pulmonary hypertension
     Dosage: 10 MG, QD
     Route: 048
     Dates: start: 20151027, end: 20160602
  2. ADEMPAS [Suspect]
     Active Substance: RIOCIGUAT
     Indication: Pulmonary hypertension
     Dosage: 2.5 MG, TID
     Route: 048
     Dates: start: 20151027, end: 20160602
  3. OPSUMIT [Suspect]
     Active Substance: MACITENTAN
     Indication: Pulmonary hypertension
     Dosage: 10 MG, QD
     Route: 048
     Dates: start: 20151027, end: 20160602
  4. AZOSEMIDE [Suspect]
     Active Substance: AZOSEMIDE
     Indication: Pulmonary hypertension
     Dosage: 30 MG, QD
     Route: 048
     Dates: start: 20151027, end: 20160602
  5. SPIRONOLACTONE [Suspect]
     Active Substance: SPIRONOLACTONE
     Indication: Pulmonary hypertension
     Dosage: 25 MG, QD
     Route: 048
     Dates: start: 20151027, end: 20160602
  6. FEBUXOSTAT [Suspect]
     Active Substance: FEBUXOSTAT
     Indication: Pulmonary hypertension
     Dosage: 10 MG, QD
     Route: 048
     Dates: start: 20151027, end: 20160602
  7. SAMSCA [Suspect]
     Active Substance: TOLVAPTAN
     Indication: Pulmonary hypertension
     Dosage: 15 MG, QD
     Route: 048
     Dates: start: 20151027, end: 20160602
  8. METILDIGOXIN [Suspect]
     Active Substance: METILDIGOXIN
     Indication: Pulmonary hypertension
     Dosage: 0.05 MG, QD
     Route: 048
     Dates: start: 20151027, end: 20160602
  9. PIMOBENDAN [Suspect]
     Active Substance: PIMOBENDAN
     Indication: Pulmonary hypertension
     Dosage: 2.5 MG, BID
     Route: 048
     Dates: start: 20151027, end: 20160602
  10. OXYGEN [Concomitant]
     Active Substance: OXYGEN
     Route: 055
  11. BERAPROST SODIUM [Concomitant]
     Active Substance: BERAPROST SODIUM
     Dosage: 60 ?G, BID
     Route: 048
     Dates: start: 20160518, end: 20160602

REACTIONS (2)
  - Pulmonary hypertension [Fatal]
  - Right ventricular failure [Fatal]

NARRATIVE: CASE EVENT DATE: 20160602
